FAERS Safety Report 8154964 (Version 8)
Quarter: 2014Q1

REPORT INFORMATION
  Report Type: Report from Study
  Country: US (occurrence: US)
  Receive Date: 20110925
  Receipt Date: 20140224
  Transmission Date: 20141002
  Serious: Yes (Hospitalization)
  Sender: FDA-Public Use
  Company Number: PHHO2011US14378

PATIENT
  Age: 51 Year
  Sex: Male
  Weight: 81.5 kg

DRUGS (10)
  1. FANAPT [Suspect]
     Indication: SCHIZOPHRENIA
     Dosage: 1 MG, BID
     Dates: start: 20110819, end: 20110819
  2. FANAPT [Suspect]
     Dosage: 2 MG, BID
     Dates: start: 20110820, end: 20110820
  3. FANAPT [Suspect]
     Dosage: 4 MG, BID
     Dates: start: 20110821, end: 20110821
  4. FANAPT [Suspect]
     Dosage: 6 MG, BID
     Dates: start: 20110822
  5. DIOVAN [Suspect]
     Dosage: 320 MG, UNK
     Route: 048
     Dates: start: 200709
  6. HYDROCHLOROTHIAZIDE [Suspect]
     Dosage: 10 MG, UNK
     Route: 048
     Dates: start: 200709
  7. HUMULIN [Suspect]
     Indication: TYPE 1 DIABETES MELLITUS
     Dosage: 70/30
     Route: 030
     Dates: start: 1961
  8. ABILIFY [Concomitant]
     Indication: SCHIZOPHRENIA
     Dosage: 10 MG, QD
     Route: 048
     Dates: start: 20110819, end: 20110830
  9. ABILIFY [Concomitant]
     Dosage: 15 MG, QD
     Route: 048
     Dates: start: 20110615, end: 20110818
  10. ABILIFY [Concomitant]
     Dosage: 15 MG, QD
     Route: 048
     Dates: start: 20110901

REACTIONS (2)
  - Syncope [Recovered/Resolved]
  - Arthralgia [Recovered/Resolved]
